FAERS Safety Report 5165936-5 (Version None)
Quarter: 2006Q4

REPORT INFORMATION
  Report Type: 
  Country: None (occurrence: None)
  Receive Date: 20061206
  Receipt Date: 20061129
  Transmission Date: 20070319
  Serious: Yes (Death)
  Sender: FDA-Public Use
  Company Number: ZA-BOEHRINGER INGELHEIM PHARMACEUTICALS, INC.-2006-DE-06322GD

PATIENT
  Age: 20 Year
  Sex: Female

DRUGS (2)
  1. TRIOMUNE [Suspect]
     Indication: HIV INFECTION
  2. PULMONARY TUBERCULOSIS MEDICATION [Suspect]
     Indication: PULMONARY TUBERCULOSIS

REACTIONS (1)
  - APLASIA PURE RED CELL [None]
